FAERS Safety Report 4861220-5 (Version None)
Quarter: 2005Q4

REPORT INFORMATION
  Report Type: 
  Country: None (occurrence: None)
  Receive Date: 20051216
  Receipt Date: 20051207
  Transmission Date: 20060501
  Serious: Yes (Other)
  Sender: FDA-Public Use
  Company Number: 2005145851

PATIENT
  Age: 58 Year
  Sex: Male

DRUGS (1)
  1. LIPITOR [Suspect]
     Indication: HYPERLIPIDAEMIA
     Dosage: 10 MG (10 MG, 1 IN 1 D), UNKNOWN
     Route: 065
     Dates: start: 20050318, end: 20051014

REACTIONS (2)
  - AGEUSIA [None]
  - ANOSMIA [None]
